FAERS Safety Report 9995888 (Version 2)
Quarter: 2014Q1

REPORT INFORMATION
  Report Type: Spontaneous
  Country: NL (occurrence: NL)
  Receive Date: 20140311
  Receipt Date: 20140318
  Transmission Date: 20141002
  Serious: Yes (Death)
  Sender: FDA-Public Use
  Company Number: NL-SA-2014SA029045

PATIENT
  Age: 71 Year
  Sex: Female

DRUGS (1)
  1. CEREZYME [Suspect]
     Indication: GAUCHER^S DISEASE
     Dosage: DOSE:15 UNIT(S)/KILOGRAM BODYWEIGHT
     Route: 042
     Dates: start: 19921005, end: 201109

REACTIONS (1)
  - Cardiac failure [Fatal]
